FAERS Safety Report 10129614 (Version 1)
Quarter: 2014Q2

REPORT INFORMATION
  Report Type: Spontaneous
  Country: US (occurrence: None)
  Receive Date: 20140425
  Receipt Date: 20140425
  Transmission Date: 20141212
  Serious: Yes (Other)
  Sender: FDA-Public Use
  Company Number: None

PATIENT
  Age: 62 Year
  Sex: Male
  Weight: 102.97 kg

DRUGS (6)
  1. HUMALOG [Concomitant]
  2. IBUPROFEN [Concomitant]
  3. FARXIGA [Suspect]
     Indication: TYPE 1 DIABETES MELLITUS
     Dosage: 1 PILL
     Route: 048
  4. ZOSYN [Concomitant]
  5. FARXIGA [Concomitant]
  6. LANTUS [Concomitant]

REACTIONS (4)
  - Pain [None]
  - Abdominal pain upper [None]
  - Chest pain [None]
  - Infusion related reaction [None]
